FAERS Safety Report 22237285 (Version 2)
Quarter: 2023Q2

REPORT INFORMATION
  Report Type: Spontaneous
  Country: US (occurrence: US)
  Receive Date: 20230421
  Receipt Date: 20230511
  Transmission Date: 20230722
  Serious: No
  Sender: FDA-Public Use
  Company Number: US-UNITED THERAPEUTICS-UNT-2023-008926

PATIENT
  Age: 82 Year
  Sex: Female
  Weight: 53.968 kg

DRUGS (9)
  1. TYVASO DPI [Suspect]
     Active Substance: TREPROSTINIL
     Indication: Pulmonary arterial hypertension
     Dosage: 32 ?G, QID
     Dates: start: 202303
  2. TYVASO DPI [Suspect]
     Active Substance: TREPROSTINIL
     Dosage: 48 ?G, QID (16 ?G, QID +32 ?G, QID)
     Dates: start: 202303
  3. TYVASO DPI [Suspect]
     Active Substance: TREPROSTINIL
     Dosage: 32 ?G, QID (DOSE DECREASED)
  4. TYVASO DPI [Suspect]
     Active Substance: TREPROSTINIL
     Dosage: UNK
     Dates: start: 20230314
  5. TYVASO DPI [Suspect]
     Active Substance: TREPROSTINIL
     Indication: Pulmonary arterial hypertension
     Dosage: UNK
  6. TYVASO DPI [Suspect]
     Active Substance: TREPROSTINIL
     Dosage: UNK
  7. TYVASO DPI [Suspect]
     Active Substance: TREPROSTINIL
     Indication: Pulmonary arterial hypertension
     Dosage: UNK
  8. TADALAFIL [Concomitant]
     Active Substance: TADALAFIL
     Indication: Product used for unknown indication
     Dosage: UNK
     Route: 065
  9. ELIQUIS [Concomitant]
     Active Substance: APIXABAN
     Indication: Product used for unknown indication
     Dosage: UNK
     Route: 065

REACTIONS (6)
  - Headache [Unknown]
  - Cough [Unknown]
  - Throat irritation [Unknown]
  - Seasonal allergy [Unknown]
  - Product dose omission issue [Unknown]
  - Product use complaint [Unknown]

NARRATIVE: CASE EVENT DATE: 20230301
